FAERS Safety Report 11079491 (Version 1)
Quarter: 2015Q2

REPORT INFORMATION
  Report Type: Report from Study
  Country: DE (occurrence: DE)
  Receive Date: 20150430
  Receipt Date: 20150430
  Transmission Date: 20150821
  Serious: Yes (Death, Other)
  Sender: FDA-Public Use
  Company Number: DE-BRISTOL-MYERS SQUIBB COMPANY-21548649

PATIENT
  Age: 74 Year
  Sex: Female
  Weight: 85 kg

DRUGS (1)
  1. APIXABAN [Suspect]
     Active Substance: APIXABAN
     Indication: CEREBROVASCULAR ACCIDENT PROPHYLAXIS
     Dosage: 5 MG, BID
     Route: 048
     Dates: start: 20140715, end: 20140804

REACTIONS (4)
  - Escherichia sepsis [Fatal]
  - Sudden death [Fatal]
  - Cholelithiasis [Fatal]
  - Pyelonephritis acute [Fatal]

NARRATIVE: CASE EVENT DATE: 20140804
